FAERS Safety Report 13826687 (Version 1)
Quarter: 2017Q3

REPORT INFORMATION
  Report Type: Spontaneous
  Country: US (occurrence: US)
  Receive Date: 20170802
  Receipt Date: 20170802
  Transmission Date: 20171127
  Serious: No
  Sender: FDA-Public Use
  Company Number: US-ROCHE-647910

PATIENT
  Age: 57 Year
  Sex: Female

DRUGS (8)
  1. COLD MEDICATION NOS [Concomitant]
     Indication: COUGH
     Dosage: DRUG NAME: OTC COUGH MEDICINE
     Route: 065
  2. SYNTHROID [Concomitant]
     Active Substance: LEVOTHYROXINE SODIUM
     Route: 065
  3. IMITREX [Concomitant]
     Active Substance: SUMATRIPTAN SUCCINATE
     Route: 065
  4. VITAMIN B COMPLEX [Concomitant]
     Active Substance: CYANOCOBALAMIN\DEXPANTHENOL\NIACINAMIDE\PYRIDOXINE HYDROCHLORIDE\RIBOFLAVIN 5^-PHOSPHATE SODIUM\THIAMINE HYDROCHLORIDE\VITAMIN B COMPLEX
     Dosage: DRUG NAME: B-VITS
     Route: 065
  5. BONIVA [Suspect]
     Active Substance: IBANDRONATE SODIUM
     Indication: OSTEOPENIA
     Route: 048
  6. CALCIUM [Concomitant]
     Active Substance: CALCIUM
     Route: 065
  7. MULTIVITAMIN NOS [Concomitant]
     Active Substance: VITAMINS
     Dosage: DRUG NAME: MULTIVITAMINS
     Route: 065
  8. COUGH MEDICATION NOS [Concomitant]
     Indication: COUGH
     Dosage: DRUG NAME: OTC COUGH MEDICINE
     Route: 065

REACTIONS (4)
  - Migraine [Unknown]
  - Muscle spasms [Unknown]
  - Arthralgia [Unknown]
  - Musculoskeletal pain [Unknown]
